FAERS Safety Report 9407237 (Version 1)
Quarter: 2013Q3

REPORT INFORMATION
  Report Type: Spontaneous
  Country: US (occurrence: US)
  Receive Date: 20130718
  Receipt Date: 20130718
  Transmission Date: 20140515
  Serious: Yes (Death)
  Sender: FDA-Public Use
  Company Number: US-PFIZER INC-2013208478

PATIENT
  Sex: Female

DRUGS (9)
  1. INLYTA [Suspect]
     Indication: RENAL CANCER
     Dosage: 5 MG, UNK
     Dates: start: 20130530
  2. AFINITOR [Concomitant]
     Dosage: UNK
  3. AMITRIPTYLINE HYDROCHLORIDE [Concomitant]
     Dosage: UNK
  4. CENTRUM SILVER ULTRA WOMENS [Concomitant]
     Dosage: UNK
  5. FENTANYL [Concomitant]
     Dosage: UNK
  6. FERROUS SULFATE [Concomitant]
     Dosage: UNK
  7. FLUTICASONE PROPIONATE [Concomitant]
     Dosage: UNK
  8. GLUCOSAMINE HYDROCHLORIDE [Concomitant]
     Dosage: UNK
  9. HYDROCODONE-ACETAMINOPHEN [Concomitant]
     Dosage: UNK

REACTIONS (1)
  - Death [Fatal]
